FAERS Safety Report 10040617 (Version 1)
Quarter: 2014Q1

REPORT INFORMATION
  Report Type: Spontaneous
  Country: US (occurrence: US)
  Receive Date: 20140327
  Receipt Date: 20140327
  Transmission Date: 20141002
  Serious: No
  Sender: FDA-Public Use
  Company Number: US-GLAXOSMITHKLINE-A1056764A

PATIENT
  Age: 84 Year
  Sex: Female

DRUGS (9)
  1. MEKINIST [Suspect]
     Indication: METASTATIC MALIGNANT MELANOMA
     Dosage: 2MG PER DAY
     Route: 048
     Dates: start: 201309
  2. IMDUR [Concomitant]
  3. LESCOL [Concomitant]
  4. MELOXICAM [Concomitant]
  5. METOPROLOL [Concomitant]
  6. PANTOPRAZOLE [Concomitant]
  7. SYNTHROID [Concomitant]
  8. DIAZIDE [Concomitant]
  9. WELCHOL [Concomitant]

REACTIONS (2)
  - Alopecia [Not Recovered/Not Resolved]
  - Dermatitis acneiform [Unknown]
